FAERS Safety Report 16497870 (Version 1)
Quarter: 2019Q2

REPORT INFORMATION
  Report Type: Report from Study
  Country: BR (occurrence: BR)
  Receive Date: 20190628
  Receipt Date: 20190628
  Transmission Date: 20190711
  Serious: Yes (Other)
  Sender: FDA-Public Use
  Company Number: BR-JNJFOC-20190620259

PATIENT
  Age: 46 Year
  Sex: Female

DRUGS (4)
  1. SIMPONI [Suspect]
     Active Substance: GOLIMUMAB
     Indication: PSORIATIC ARTHROPATHY
     Route: 058
     Dates: start: 20190515
  2. NIMESULIDE [Concomitant]
     Active Substance: NIMESULIDE
  3. METHOTREXATE. [Concomitant]
     Active Substance: METHOTREXATE
     Route: 065
  4. CALCIUM                            /00060701/ [Concomitant]
     Active Substance: CALCIUM
     Route: 065

REACTIONS (2)
  - Breast cancer [Unknown]
  - Pain in extremity [Not Recovered/Not Resolved]
